FAERS Safety Report 4608071-4 (Version None)
Quarter: 2005Q1

REPORT INFORMATION
  Report Type: 
  Country: None (occurrence: None)
  Receive Date: 20050314
  Receipt Date: 20041112
  Transmission Date: 20050727
  Serious: Yes (Life-Threatening)
  Sender: FDA-Public Use
  Company Number: NO-MERCK-0411NOR00041

PATIENT
  Age: 47 Year
  Sex: Male

DRUGS (11)
  1. ZOCOR [Suspect]
     Indication: HYPERCHOLESTEROLAEMIA
     Route: 048
     Dates: start: 20040301, end: 20040901
  2. ZOCOR [Suspect]
     Route: 048
     Dates: start: 20040901, end: 20041020
  3. CYCLOSPORINE [Suspect]
     Indication: RENAL TRANSPLANT
     Route: 048
     Dates: start: 20040101
  4. CYCLOSPORINE [Suspect]
     Route: 048
  5. CYCLOSPORINE [Suspect]
     Route: 048
  6. PREDNISOLONE [Concomitant]
     Indication: RENAL TRANSPLANT
     Route: 048
     Dates: start: 20040101
  7. MYCOPHENOLATE MOFETIL [Concomitant]
     Indication: RENAL TRANSPLANT
     Route: 048
     Dates: start: 20040101
  8. INSULIN, ISOPHANE [Concomitant]
     Indication: DIABETES MELLITUS
     Route: 065
  9. INSULIN LISPRO [Concomitant]
     Indication: DIABETES MELLITUS
     Route: 065
  10. AMLODIPINE BESYLATE [Concomitant]
     Indication: HYPERTENSION
     Route: 048
  11. CARVEDILOL [Concomitant]
     Indication: HYPERTENSION
     Route: 048

REACTIONS (3)
  - BLOOD CREATINE PHOSPHOKINASE INCREASED [None]
  - DRUG INTERACTION [None]
  - MYALGIA [None]
